FAERS Safety Report 9877003 (Version 1)
Quarter: 2014Q1

REPORT INFORMATION
  Report Type: Spontaneous
  Country: US (occurrence: US)
  Receive Date: 20140206
  Receipt Date: 20140206
  Transmission Date: 20141002
  Serious: No
  Sender: FDA-Public Use
  Company Number: US-PFIZER INC-2014033204

PATIENT
  Age: 58 Year
  Sex: Female
  Weight: 63.04 kg

DRUGS (1)
  1. PREMPRO [Suspect]
     Indication: HORMONE REPLACEMENT THERAPY
     Dosage: (0.625-2.5 MG), UNK

REACTIONS (1)
  - Drug effect incomplete [Unknown]
